FAERS Safety Report 9414475 (Version 1)
Quarter: 2013Q3

REPORT INFORMATION
  Report Type: Spontaneous
  Country: US (occurrence: US)
  Receive Date: 20130723
  Receipt Date: 20130723
  Transmission Date: 20140515
  Serious: No
  Sender: FDA-Public Use
  Company Number: US-B.I. PHARMACEUTICALS,INC./RIDGEFIELD-2013-BI-21194BP

PATIENT
  Age: 73 Year
  Sex: Female

DRUGS (6)
  1. COMBIVENT [Suspect]
     Indication: CHRONIC OBSTRUCTIVE PULMONARY DISEASE
     Dosage: STRENGTH: 20 MCG / 100 MCG; DAILY DOSE: 80 MCG/ 400 MCG
     Route: 055
     Dates: start: 20130716
  2. COMBIVENT INHALATION AEROSOL [Concomitant]
     Route: 055
     Dates: end: 20130715
  3. LORATADINE [Concomitant]
     Route: 048
  4. AMLODIPINE [Concomitant]
     Dosage: STRENGTH: 5 MG; DAILY DOSE: 2. 5 MG
     Route: 048
  5. HYDRALAZINE [Concomitant]
     Indication: HYPERTENSION
     Dosage: STRENGTH: 100 MG; DAILY DOSE: 50 MG
     Route: 048
  6. BENICAR [Concomitant]
     Indication: HYPERTENSION
     Dosage: 15 MG
     Route: 048

REACTIONS (2)
  - Vitreous floaters [Recovered/Resolved]
  - Dizziness [Recovered/Resolved]
